FAERS Safety Report 6589488-8 (Version None)
Quarter: 2010Q1

REPORT INFORMATION
  Report Type: 
  Country: None (occurrence: None)
  Receive Date: 20100212
  Receipt Date: 20100122
  Transmission Date: 20100710
  Serious: Yes (Life-Threatening, Hospitalization, Other)
  Sender: FDA-Public Use
  Company Number: SPV1-2010-00114

PATIENT
  Age: 48 Year
  Sex: Male

DRUGS (1)
  1. MEZAVANT(MESALAZINE, MESALAMINE) TABLET [Suspect]
     Indication: COLITIS
     Dosage: 1200 MG, ORAL
     Route: 048
     Dates: start: 20091201, end: 20091208

REACTIONS (1)
  - COOMBS POSITIVE HAEMOLYTIC ANAEMIA [None]
